FAERS Safety Report 7622714-2 (Version None)
Quarter: 2011Q3

REPORT INFORMATION
  Report Type: 
  Country: None (occurrence: None)
  Receive Date: 20110712
  Receipt Date: 20110627
  Transmission Date: 20111222
  Serious: Yes (Death)
  Sender: FDA-Public Use
  Company Number: 2011MA008079

PATIENT
  Age: 73 Year
  Sex: Female

DRUGS (3)
  1. LORAZEPAM [Suspect]
     Indication: SUICIDE ATTEMPT
     Dosage: 0.5 MG, QD
  2. MOCLOBEMIDE [Concomitant]
  3. AMLORIDE HYDROCHLOROROTHIAZIDE [Concomitant]

REACTIONS (1)
  - COMPLETED SUICIDE [None]
